FAERS Safety Report 7789959-2 (Version None)
Quarter: 2011Q3

REPORT INFORMATION
  Report Type: 
  Country: None (occurrence: None)
  Receive Date: 20110930
  Receipt Date: 20110527
  Transmission Date: 20111222
  Serious: No
  Sender: FDA-Public Use
  Company Number: US-ASTRAZENECA-2008UW17441

PATIENT
  Age: 70 Year
  Sex: Female
  Weight: 108.9 kg

DRUGS (9)
  1. INSULIN [Concomitant]
  2. LISINOPRIL [Concomitant]
  3. PRAVASTATIN [Concomitant]
  4. ARIMIDEX [Suspect]
     Indication: BREAST CANCER
     Route: 048
     Dates: start: 20050101, end: 20100101
  5. LANOXIN [Concomitant]
  6. METOPROLOL [Concomitant]
  7. ACETYLSALICYLIC ACID SRT [Concomitant]
  8. HYDROCHLOROTHIAZIDE [Concomitant]
  9. METFORMIN HCL [Concomitant]

REACTIONS (6)
  - HYPOKINESIA [None]
  - BLOOD PRESSURE INCREASED [None]
  - MALAISE [None]
  - ARTHRALGIA [None]
  - ARTHRITIS [None]
  - BACK PAIN [None]
